FAERS Safety Report 16712478 (Version 2)
Quarter: 2019Q4

REPORT INFORMATION
  Report Type: Spontaneous
  Country: US (occurrence: US)
  Receive Date: 20190816
  Receipt Date: 20191009
  Transmission Date: 20200122
  Serious: Yes (Hospitalization, Other)
  Sender: FDA-Public Use
  Company Number: US-ELI_LILLY_AND_COMPANY-US201908002571

PATIENT
  Sex: Female
  Weight: 71 kg

DRUGS (15)
  1. ALBUTEROL [SALBUTAMOL] [Concomitant]
     Active Substance: ALBUTEROL
     Indication: PRODUCT USED FOR UNKNOWN INDICATION
     Dosage: 90 UG, EVERY 4 HRS
     Route: 065
  2. VICKS DAYQUIL COLD AND FLU [Interacting]
     Active Substance: ACETAMINOPHEN\DEXTROMETHORPHAN HYDROBROMIDE\PHENYLEPHRINE HYDROCHLORIDE
     Indication: NASOPHARYNGITIS
     Dosage: 2 DOSAGE FORM, DAILY
     Dates: start: 20190223, end: 20190223
  3. VICKS DAYQUIL COLD AND FLU [Interacting]
     Active Substance: ACETAMINOPHEN\DEXTROMETHORPHAN HYDROBROMIDE\PHENYLEPHRINE HYDROCHLORIDE
     Indication: OROPHARYNGEAL PAIN
  4. PROZAC [Interacting]
     Active Substance: FLUOXETINE HYDROCHLORIDE
     Dosage: 5 MG, UNKNOWN
     Route: 065
     Dates: start: 20190410
  5. MELATONIN [Concomitant]
     Active Substance: MELATONIN
     Indication: PRODUCT USED FOR UNKNOWN INDICATION
     Dosage: 10 MG, DAILY
     Route: 048
  6. PROZAC [Suspect]
     Active Substance: FLUOXETINE HYDROCHLORIDE
     Indication: DEPRESSION
     Dosage: 10 MG, DAILY
     Route: 048
     Dates: start: 2018, end: 20190226
  7. RISPERDAL [Concomitant]
     Active Substance: RISPERIDONE
     Indication: PRODUCT USED FOR UNKNOWN INDICATION
  8. ZIPRASIDONE. [Concomitant]
     Active Substance: ZIPRASIDONE
     Indication: PRODUCT USED FOR UNKNOWN INDICATION
     Dosage: 40 MG, BID
  9. VICKS DAYQUIL COLD AND FLU [Interacting]
     Active Substance: ACETAMINOPHEN\DEXTROMETHORPHAN HYDROBROMIDE\PHENYLEPHRINE HYDROCHLORIDE
     Indication: NASAL CONGESTION
  10. HYDROCORTISONE. [Concomitant]
     Active Substance: HYDROCORTISONE
     Indication: PRODUCT USED FOR UNKNOWN INDICATION
     Dosage: UNK, UNKNOWN
     Route: 065
  11. TRAZODONE [Concomitant]
     Active Substance: TRAZODONE HYDROCHLORIDE
     Indication: INSOMNIA
     Dosage: DA
     Route: 048
  12. MIRALAX [Concomitant]
     Active Substance: POLYETHYLENE GLYCOL 3350
     Indication: PRODUCT USED FOR UNKNOWN INDICATION
     Dosage: 17 G, DAILY
     Route: 048
  13. DEPAKOTE [Concomitant]
     Active Substance: DIVALPROEX SODIUM
     Indication: PRODUCT USED FOR UNKNOWN INDICATION
     Dosage: UNK, UNKNOWN
     Route: 065
  14. FERROUS SULFATE. [Concomitant]
     Active Substance: FERROUS SULFATE
     Indication: PRODUCT USED FOR UNKNOWN INDICATION
     Dosage: UNK, UNKNOWN
     Route: 065
  15. METFORMIN [Concomitant]
     Active Substance: METFORMIN HYDROCHLORIDE
     Indication: PRODUCT USED FOR UNKNOWN INDICATION
     Dosage: 500 MG, DAILY
     Route: 048

REACTIONS (40)
  - Blood pressure diastolic decreased [Unknown]
  - Sedation complication [Unknown]
  - Joint injury [Unknown]
  - Contusion [Unknown]
  - Perseveration [Unknown]
  - Blood bicarbonate increased [Unknown]
  - Irritability [Unknown]
  - Protein total increased [Unknown]
  - Fatigue [Not Recovered/Not Resolved]
  - Pain in extremity [Unknown]
  - Bladder pain [Unknown]
  - Erythema [Unknown]
  - Catatonia [Recovering/Resolving]
  - Suicidal ideation [Unknown]
  - Drug interaction [Recovered/Resolved]
  - Psychomotor hyperactivity [Unknown]
  - Mood swings [Unknown]
  - Abdominal pain upper [Unknown]
  - Pollakiuria [Unknown]
  - Dysuria [Unknown]
  - Axillary pain [Unknown]
  - Fall [Unknown]
  - Facial spasm [Unknown]
  - Blood alkaline phosphatase increased [Unknown]
  - Musculoskeletal pain [Unknown]
  - Vomiting [Unknown]
  - Catatonia [Recovered/Resolved]
  - Urinary incontinence [Unknown]
  - Dyspnoea [Unknown]
  - Urinary retention [Unknown]
  - Asthenia [Unknown]
  - Regressive behaviour [Not Recovered/Not Resolved]
  - Serotonin syndrome [Recovered/Resolved]
  - Psychotic disorder [Recovered/Resolved]
  - Mental status changes [Recovered/Resolved]
  - Screaming [Unknown]
  - Anal incontinence [Recovered/Resolved]
  - Suprapubic pain [Unknown]
  - Memory impairment [Unknown]
  - Nervous system disorder [Unknown]

NARRATIVE: CASE EVENT DATE: 201902
